FAERS Safety Report 20602870 (Version 1)
Quarter: 2022Q1

REPORT INFORMATION
  Report Type: Spontaneous
  Country: CN (occurrence: CN)
  Receive Date: 20220316
  Receipt Date: 20220316
  Transmission Date: 20220424
  Serious: Yes (Hospitalization)
  Sender: FDA-Public Use
  Company Number: None

PATIENT
  Age: 75 Year
  Sex: Female
  Weight: 55 kg

DRUGS (6)
  1. METOPROLOL SUCCINATE [Suspect]
     Active Substance: METOPROLOL SUCCINATE
     Indication: Hypertension
     Dosage: 47.5MG, ONCE EVERY ONE DAY
     Route: 048
     Dates: start: 20210707, end: 20210929
  2. ROSUVASTATIN CALCIUM [Suspect]
     Active Substance: ROSUVASTATIN CALCIUM
     Indication: Atrial fibrillation
     Dosage: EVERY NIGHT
     Route: 048
     Dates: start: 20210907, end: 20210929
  3. RIVAROXABAN [Suspect]
     Active Substance: RIVAROXABAN
     Indication: Atrial fibrillation
     Dosage: 10.0MG, ONCE EVERY ONE DAY
     Route: 048
     Dates: start: 20210709, end: 20210920
  4. HYDROCHLOROTHIAZIDE [Concomitant]
     Active Substance: HYDROCHLOROTHIAZIDE
     Indication: Hypertension
     Dosage: 25.0MG, ONCE EVERY ONE DAY
     Route: 048
     Dates: start: 20210707, end: 20210929
  5. SACUBITRIL\VALSARTAN [Concomitant]
     Active Substance: SACUBITRIL\VALSARTAN
     Indication: Hypertension
     Dosage: 50.0MG, ONCE EVERY ONE DAY
     Route: 048
     Dates: start: 20210707, end: 20210929
  6. SPIRONOLACTONE [Concomitant]
     Active Substance: SPIRONOLACTONE
     Indication: Product used for unknown indication
     Dosage: 20.0MG, ONCE EVERY ONE DAY
     Route: 048
     Dates: start: 20210709, end: 20210929

REACTIONS (3)
  - Hepatocellular injury [Recovering/Resolving]
  - Hepatic function abnormal [Recovering/Resolving]
  - Abdominal pain [Recovering/Resolving]

NARRATIVE: CASE EVENT DATE: 20210920
